FAERS Safety Report 4304555-7 (Version None)
Quarter: 2004Q1

REPORT INFORMATION
  Report Type: 
  Country: None (occurrence: None)
  Receive Date: 20040225
  Receipt Date: 20040225
  Transmission Date: 20041129
  Serious: Yes (Hospitalization)
  Sender: FDA-Public Use
  Company Number: None

PATIENT
  Age: 80 Year
  Sex: Male
  Weight: 61.3 kg

DRUGS (6)
  1. FLUDARA [Suspect]
     Indication: CHRONIC LYMPHOCYTIC LEUKAEMIA
     Dosage: FLUDARA 25 MG QD X 3 DAYS
     Dates: start: 20040106, end: 20040108
  2. FLUDARA [Suspect]
     Indication: EXTRANODAL MARGINAL ZONE B-CELL LYMPHOMA (MALT TYPE)
     Dosage: FLUDARA 25 MG QD X 3 DAYS
     Dates: start: 20040106, end: 20040108
  3. PROTONIX [Concomitant]
  4. HYDROXYCHLOROQUINE [Concomitant]
  5. METOPROLOL [Concomitant]
  6. ASPIRIN [Concomitant]

REACTIONS (4)
  - ASTHENIA [None]
  - CONFUSIONAL STATE [None]
  - EXTRAPYRAMIDAL DISORDER [None]
  - MUSCLE RIGIDITY [None]
